FAERS Safety Report 18568883 (Version 1)
Quarter: 2020Q4

REPORT INFORMATION
  Report Type: Spontaneous
  Country: US (occurrence: US)
  Receive Date: 20201201
  Receipt Date: 20201201
  Transmission Date: 20210114
  Serious: Yes (Hospitalization)
  Sender: FDA-Public Use
  Company Number: None

PATIENT
  Age: 27 Year
  Sex: Female

DRUGS (8)
  1. HYDROXYCHLOR TAB 200MG [Concomitant]
     Active Substance: HYDROXYCHLOROQUINE
     Dates: start: 20201125
  2. HYDROCO/APAP TAB 5-325MG [Concomitant]
     Active Substance: ACETAMINOPHEN\HYDROCODONE
     Dates: start: 20201027
  3. FOLIC ACID TAB 1000MCG [Concomitant]
     Dates: start: 20201125
  4. VIT D CAP 50000 UNT [Concomitant]
     Dates: start: 20201125
  5. METHOTREXATE TAB 2.5MG [Concomitant]
     Active Substance: METHOTREXATE
     Dates: start: 20201125
  6. BENLYSTA [Suspect]
     Active Substance: BELIMUMAB
     Indication: SYSTEMIC LUPUS ERYTHEMATOSUS
     Dosage: ?          OTHER FREQUENCY:EVERY WEEK;?
     Route: 058
     Dates: start: 20200423
  7. PREDNISONE TAB 20MG [Concomitant]
     Active Substance: PREDNISONE
     Dates: start: 20201120
  8. PREDNISONE TAB 10MG [Concomitant]
     Active Substance: PREDNISONE
     Dates: start: 20201124

REACTIONS (2)
  - Hospitalisation [None]
  - Product dose omission issue [None]

NARRATIVE: CASE EVENT DATE: 20201024
